FAERS Safety Report 7711019-7 (Version None)
Quarter: 2011Q3

REPORT INFORMATION
  Report Type: 
  Country: None (occurrence: None)
  Receive Date: 20110825
  Receipt Date: 20110812
  Transmission Date: 20111222
  Serious: Yes (Hospitalization)
  Sender: FDA-Public Use
  Company Number: PL-MYLANLABS-2011S1016970

PATIENT
  Age: 50 Year
  Sex: Female

DRUGS (4)
  1. ASPIRIN [Concomitant]
     Indication: INFLUENZA LIKE ILLNESS
     Route: 065
  2. TAMOXIFEN CITRATE [Suspect]
     Indication: BREAST CANCER METASTATIC
     Route: 065
  3. HERBAL MIXTURE [Suspect]
     Indication: INFLUENZA LIKE ILLNESS
     Route: 061
  4. IBUPROFEN [Concomitant]
     Indication: INFLUENZA LIKE ILLNESS
     Route: 065

REACTIONS (1)
  - RADIATION SKIN INJURY [None]
